FAERS Safety Report 6369663-8 (Version None)
Quarter: 2009Q3

REPORT INFORMATION
  Report Type: 
  Country: None (occurrence: None)
  Receive Date: 20090923
  Receipt Date: 20090917
  Transmission Date: 20100115
  Serious: Yes (Hospitalization, Other)
  Sender: FDA-Public Use
  Company Number: US-AMGEN-KDL358016

PATIENT
  Sex: Male
  Weight: 80.8 kg

DRUGS (12)
  1. PROCRIT [Suspect]
     Indication: ANAEMIA
     Route: 058
     Dates: start: 20090611, end: 20090729
  2. NEXIUM [Concomitant]
  3. ASPIRIN [Concomitant]
  4. FERROUS SULFATE TAB [Concomitant]
     Dates: end: 20090710
  5. AVAPRO [Concomitant]
  6. PROTONIX [Concomitant]
  7. CELLCEPT [Concomitant]
     Route: 048
  8. PROGRAF [Concomitant]
  9. OSCAL [Concomitant]
  10. PEGASYS [Concomitant]
  11. RIBAVIRIN [Concomitant]
  12. MAGNESIUM OXIDE [Concomitant]

REACTIONS (13)
  - ANAEMIA [None]
  - ASTHENIA [None]
  - BLOOD IRON INCREASED [None]
  - BONE MARROW FAILURE [None]
  - CHEST PAIN [None]
  - CHILLS [None]
  - CONFUSIONAL STATE [None]
  - DYSPEPSIA [None]
  - FAECES DISCOLOURED [None]
  - FATIGUE [None]
  - NAUSEA [None]
  - OCCULT BLOOD POSITIVE [None]
  - TRANSAMINASES INCREASED [None]
